FAERS Safety Report 4960955-3 (Version None)
Quarter: 2006Q1

REPORT INFORMATION
  Report Type: 
  Country: None (occurrence: None)
  Receive Date: 20060328
  Receipt Date: 20060316
  Transmission Date: 20060701
  Serious: Yes (Disabling)
  Sender: FDA-Public Use
  Company Number: 2006RR-01800

PATIENT
  Age: 63 Year
  Sex: Male
  Weight: 90.5 kg

DRUGS (2)
  1. AMOXICILLIN [Suspect]
     Indication: LOWER RESPIRATORY TRACT INFECTION
     Dosage: 500  MG, TID, ORAL
     Route: 048
     Dates: start: 20051205, end: 20051210
  2. NICOTINE [Concomitant]

REACTIONS (1)
  - UVEITIS [None]
